FAERS Safety Report 6856187-4 (Version None)
Quarter: 2010Q3

REPORT INFORMATION
  Report Type: 
  Country: None (occurrence: None)
  Receive Date: 20100719
  Receipt Date: 20100707
  Transmission Date: 20110219
  Serious: Yes (Hospitalization)
  Sender: FDA-Public Use
  Company Number: JP-SANOFI-AVENTIS-2010SA039324

PATIENT
  Age: 83 Year
  Sex: Female

DRUGS (2)
  1. LASIX [Suspect]
     Indication: PRODUCT USED FOR UNKNOWN INDICATION
     Dosage: DOSAGE UNKNOWN
  2. TORSEMIDE [Concomitant]
     Dosage: DOSAGE UNKNOWN

REACTIONS (1)
  - LENTIGO [None]
